FAERS Safety Report 8090614-2 (Version None)
Quarter: 2012Q1

REPORT INFORMATION
  Report Type: 
  Country: None (occurrence: None)
  Receive Date: 20120129
  Receipt Date: 20111120
  Transmission Date: 20120608
  Serious: No
  Sender: FDA-Public Use
  Company Number: US-ABBOTT-11P-163-0876386-00

PATIENT
  Age: 27 Year
  Sex: Female

DRUGS (2)
  1. IMURAN [Concomitant]
     Indication: CROHN'S DISEASE
     Dosage: DAILY
  2. HUMIRA [Suspect]
     Indication: CROHN'S DISEASE
     Dates: start: 20110901, end: 20111103

REACTIONS (8)
  - COUGH [None]
  - RHINORRHOEA [None]
  - RASH PAPULAR [None]
  - BLOOD PRESSURE INCREASED [None]
  - ALOPECIA [None]
  - NASOPHARYNGITIS [None]
  - UPPER RESPIRATORY TRACT CONGESTION [None]
  - HEADACHE [None]
